FAERS Safety Report 9442017 (Version 3)
Quarter: 2013Q3

REPORT INFORMATION
  Report Type: Spontaneous
  Country: FR (occurrence: FR)
  Receive Date: 20130806
  Receipt Date: 20130819
  Transmission Date: 20140515
  Serious: No
  Sender: FDA-Public Use
  Company Number: FR-JNJFOC-20130715490

PATIENT
  Age: 66 Year
  Sex: Female

DRUGS (2)
  1. DUROGESIC [Suspect]
     Indication: PRODUCT USED FOR UNKNOWN INDICATION
     Dosage: CUT IN HALF
     Route: 062
     Dates: start: 20130722
  2. DUROGESIC [Suspect]
     Indication: PRODUCT USED FOR UNKNOWN INDICATION
     Route: 062
     Dates: start: 20130724

REACTIONS (6)
  - Wrong technique in drug usage process [Unknown]
  - Off label use [Unknown]
  - Wrong technique in drug usage process [Unknown]
  - Vomiting [Unknown]
  - Drug prescribing error [Unknown]
  - Product quality issue [Unknown]
